FAERS Safety Report 8055726-8 (Version None)
Quarter: 2012Q1

REPORT INFORMATION
  Report Type: 
  Country: None (occurrence: None)
  Receive Date: 20120119
  Receipt Date: 20120105
  Transmission Date: 20120608
  Serious: Yes (Death)
  Sender: FDA-Public Use
  Company Number: FR-CELGENEUS-056-50794-11110192

PATIENT
  Age: 72 Year
  Sex: Male

DRUGS (2)
  1. RED BLOOD CELLS [Concomitant]
     Indication: ANAEMIA
     Dosage: .0444 IU (INTERNATIONAL UNIT)
     Route: 065
  2. VIDAZA [Suspect]
     Indication: CHRONIC MYELOMONOCYTIC LEUKAEMIA
     Dosage: 75 MILLIGRAM/KILOGRAM
     Route: 065
     Dates: start: 20091201, end: 20101101

REACTIONS (1)
  - POST PROCEDURAL HAEMORRHAGE [None]
